FAERS Safety Report 7558919-9 (Version None)
Quarter: 2011Q2

REPORT INFORMATION
  Report Type: 
  Country: None (occurrence: None)
  Receive Date: 20110613
  Receipt Date: 20110525
  Transmission Date: 20111010
  Serious: No
  Sender: FDA-Public Use
  Company Number: PHHY2010DE55056

PATIENT
  Sex: Male

DRUGS (4)
  1. DICLOFENAC SODIUM [Suspect]
     Dosage: 100
  2. TRIAMTERIL COMPLEX (HYDROCHLOROTHIAXIDE, TRIAMTERENE) [Concomitant]
  3. PAROXETINE HCL [Concomitant]
  4. TIZANIDINE HYDROCHLORIDE [Suspect]
     Indication: SPINAL DISORDER
     Dosage: 6 MG ORAL
     Route: 048
     Dates: start: 20100514

REACTIONS (4)
  - MYALGIA [None]
  - HEPATIC ENZYME INCREASED [None]
  - GAMMA-GLUTAMYLTRANSFERASE INCREASED [None]
  - BLOOD CREATINE PHOSPHOKINASE INCREASED [None]
